FAERS Safety Report 21285744 (Version 1)
Quarter: 2022Q3

REPORT INFORMATION
  Report Type: Spontaneous
  Country: US (occurrence: US)
  Receive Date: 20220902
  Receipt Date: 20220902
  Transmission Date: 20221026
  Serious: Yes (Hospitalization)
  Sender: FDA-Public Use
  Company Number: US-JNJFOC-20220848555

PATIENT
  Age: 52 Year
  Sex: Male

DRUGS (6)
  1. OPSUMIT [Suspect]
     Active Substance: MACITENTAN
     Indication: Pulmonary arterial hypertension
     Route: 048
  2. OFEV [Suspect]
     Active Substance: NINTEDANIB
     Indication: Idiopathic pulmonary fibrosis
     Route: 048
     Dates: start: 20210701
  3. OFEV [Suspect]
     Active Substance: NINTEDANIB
     Route: 048
     Dates: start: 20210701
  4. TYVASO [Suspect]
     Active Substance: TREPROSTINIL
     Indication: Pulmonary arterial hypertension
     Dosage: 6-54 G (1-9 BREATHS), FOUR TIMES A DAY (QID)
     Route: 055
     Dates: start: 20210921
  5. TYVASO [Suspect]
     Active Substance: TREPROSTINIL
     Dosage: 1 IN 6 HOURS
     Route: 055
     Dates: start: 2021
  6. ELIQUIS [Concomitant]
     Active Substance: APIXABAN

REACTIONS (17)
  - Pneumothorax [Unknown]
  - Dry throat [Unknown]
  - Cough [Unknown]
  - Abdominal pain upper [Unknown]
  - Mouth haemorrhage [Unknown]
  - Nausea [Recovering/Resolving]
  - Diarrhoea [Unknown]
  - Decreased appetite [Unknown]
  - Haemoptysis [Recovering/Resolving]
  - Dyspnoea [Unknown]
  - Abdominal discomfort [Unknown]
  - Rash [Unknown]
  - Headache [Unknown]
  - Malaise [Unknown]
  - Feeling abnormal [Unknown]
  - Weight decreased [Unknown]
  - Taste disorder [Unknown]

NARRATIVE: CASE EVENT DATE: 20210701
